FAERS Safety Report 17454663 (Version 1)
Quarter: 2020Q1

REPORT INFORMATION
  Report Type: Spontaneous
  Country: PL (occurrence: PL)
  Receive Date: 20200225
  Receipt Date: 20200225
  Transmission Date: 20200409
  Serious: Yes (Other)
  Sender: FDA-Public Use
  Company Number: PL-ALVOGEN-2020-ALVOGEN-107662

PATIENT
  Age: 63 Year
  Sex: Male

DRUGS (3)
  1. BUPROPION. [Suspect]
     Active Substance: BUPROPION
     Indication: ANTIDEPRESSANT THERAPY
  2. METOPROLOL. [Concomitant]
     Active Substance: METOPROLOL
     Indication: PRODUCT USED FOR UNKNOWN INDICATION
  3. PROPAFENONE. [Interacting]
     Active Substance: PROPAFENONE
     Indication: CARDIOVASCULAR DISORDER

REACTIONS (6)
  - Electrocardiogram QRS complex prolonged [Unknown]
  - Drug interaction [Unknown]
  - Dry mouth [Unknown]
  - Electrocardiogram change [Unknown]
  - Electrocardiogram PQ interval prolonged [Unknown]
  - Bradycardia [Unknown]
